FAERS Safety Report 7764932-9 (Version None)
Quarter: 2011Q3

REPORT INFORMATION
  Report Type: 
  Country: None (occurrence: None)
  Receive Date: 20110921
  Receipt Date: 20110908
  Transmission Date: 20111222
  Serious: Yes (Other)
  Sender: FDA-Public Use
  Company Number: US-ROCHE-797252

PATIENT
  Sex: Female
  Weight: 87.1 kg

DRUGS (1)
  1. BONIVA [Suspect]
     Indication: OSTEOPOROSIS
     Dosage: Q3 MOS
     Route: 042
     Dates: start: 20110408, end: 20110708

REACTIONS (4)
  - MIGRAINE [None]
  - DYSARTHRIA [None]
  - BONE PAIN [None]
  - INFLUENZA LIKE ILLNESS [None]
